FAERS Safety Report 14452200 (Version 2)
Quarter: 2021Q1

REPORT INFORMATION
  Report Type: Spontaneous
  Country: US (occurrence: US)
  Receive Date: 20180129
  Receipt Date: 20210127
  Transmission Date: 20210419
  Serious: Yes (Life-Threatening, Hospitalization, Other)
  Sender: FDA-Public Use
  Company Number: US-GLENMARK PHARMACEUTICALS-2018GMK031037

PATIENT
  Age: 62 Year
  Sex: Male

DRUGS (8)
  1. PROPOFOL. [Concomitant]
     Active Substance: PROPOFOL
     Indication: SEDATION
     Dosage: UNK
     Route: 042
  2. NOREPINEPHRINE. [Concomitant]
     Active Substance: NOREPINEPHRINE
     Indication: MEAN ARTERIAL PRESSURE
     Dosage: UNK
     Route: 065
  3. LINEZOLID. [Suspect]
     Active Substance: LINEZOLID
     Indication: ANTIBIOTIC THERAPY
     Dosage: UNK
     Route: 065
  4. VASOPRESSIN. [Concomitant]
     Active Substance: VASOPRESSIN
     Indication: MEAN ARTERIAL PRESSURE
     Dosage: UNK
     Route: 065
  5. CIPROFLOXACIN. [Concomitant]
     Active Substance: CIPROFLOXACIN
     Indication: ANTIBIOTIC THERAPY
     Dosage: UNK
     Route: 065
  6. MOXIFLOXACIN. [Concomitant]
     Active Substance: MOXIFLOXACIN
     Indication: PNEUMONIA
     Dosage: UNK
     Route: 065
  7. METHYLENE BLUE. [Interacting]
     Active Substance: METHYLENE BLUE
     Indication: HYPOTENSION
     Dosage: 2 MG/KG, SINGLE
     Route: 042
  8. FENTANYL. [Suspect]
     Active Substance: FENTANYL
     Indication: SEDATION
     Dosage: UNK
     Route: 042

REACTIONS (3)
  - Coma [Recovering/Resolving]
  - Serotonin syndrome [Recovering/Resolving]
  - Drug interaction [Unknown]
